FAERS Safety Report 8023021-9 (Version None)
Quarter: 2012Q1

REPORT INFORMATION
  Report Type: 
  Country: None (occurrence: None)
  Receive Date: 20120104
  Receipt Date: 20111228
  Transmission Date: 20120608
  Serious: Yes (Other)
  Sender: FDA-Public Use
  Company Number: US-US-EMD SERONO, INC.-7103995

PATIENT
  Sex: Female
  Weight: 66 kg

DRUGS (3)
  1. REBIF [Suspect]
     Indication: PRODUCT USED FOR UNKNOWN INDICATION
     Route: 058
     Dates: start: 20100924
  2. ABILIFY [Concomitant]
     Indication: BIPOLAR DISORDER
     Dates: end: 20110501
  3. CYMBALTA [Concomitant]
     Indication: BIPOLAR DISORDER
     Dates: end: 20110501

REACTIONS (5)
  - INJECTION SITE ERYTHEMA [None]
  - MANIA [None]
  - INJECTION SITE PAIN [None]
  - FIBROMYALGIA [None]
  - ARTHRALGIA [None]
